FAERS Safety Report 4438723-0 (Version None)
Quarter: 2004Q3

REPORT INFORMATION
  Report Type: 
  Country: None (occurrence: None)
  Receive Date: 20040830
  Receipt Date: 20040816
  Transmission Date: 20050211
  Serious: Yes (Other)
  Sender: FDA-Public Use
  Company Number: 200875

PATIENT
  Age: 40 Year
  Sex: Female
  Weight: 77.1115 kg

DRUGS (2)
  1. AVONEX [Suspect]
     Indication: MULTIPLE SCLEROSIS
     Dosage: 30 MCG QW IM
     Route: 030
     Dates: start: 20030605, end: 20030905
  2. SOLU-MEDROL [Concomitant]

REACTIONS (4)
  - DISEASE RECURRENCE [None]
  - LEUKOPENIA [None]
  - MENSTRUATION IRREGULAR [None]
  - NEUTROPENIA [None]
